FAERS Safety Report 14776781 (Version 2)
Quarter: 2019Q1

REPORT INFORMATION
  Report Type: Spontaneous
  Country: DK (occurrence: DK)
  Receive Date: 20180419
  Receipt Date: 20190208
  Transmission Date: 20190417
  Serious: Yes (Disabling)
  Sender: FDA-Public Use
  Company Number: DK-ACCORD-065812

PATIENT
  Age: 74 Year
  Sex: Male

DRUGS (3)
  1. SIMVASTATIN. [Suspect]
     Active Substance: SIMVASTATIN
     Indication: INTRACARDIAC THROMBUS
     Dosage: STRENGTH: 40 MG
     Route: 048
  2. METOPROLOL TARTRATE. [Concomitant]
     Active Substance: METOPROLOL TARTRATE
     Indication: HYPERTENSION
     Dosage: STARTING RETRACTION TAKES PLACE FROM 12-DEC-2012
     Route: 048
  3. AMLODIPINE [Concomitant]
     Active Substance: AMLODIPINE BESYLATE
     Indication: HYPERTENSION
     Route: 048
     Dates: start: 20121212, end: 201401

REACTIONS (10)
  - Hypoaesthesia [Unknown]
  - Sensory disturbance [Not Recovered/Not Resolved]
  - Groin pain [Unknown]
  - Oedema [Unknown]
  - Small fibre neuropathy [Not Recovered/Not Resolved]
  - Paraesthesia [Not Recovered/Not Resolved]
  - Pain in extremity [Not Recovered/Not Resolved]
  - Muscle spasms [Unknown]
  - Musculoskeletal pain [Unknown]
  - Gait disturbance [Unknown]

NARRATIVE: CASE EVENT DATE: 201306
